FAERS Safety Report 15926108 (Version 2)
Quarter: 2019Q1

REPORT INFORMATION
  Report Type: Spontaneous
  Country: US (occurrence: US)
  Receive Date: 20190206
  Receipt Date: 20190213
  Transmission Date: 20190417
  Serious: Yes (Other)
  Sender: FDA-Public Use
  Company Number: US-009507513-1901USA012232

PATIENT
  Sex: Female

DRUGS (1)
  1. NEXPLANON [Suspect]
     Active Substance: ETONOGESTREL
     Dosage: 1 ROD/ 3 YEAR IMPLANT
     Route: 059
     Dates: start: 201707

REACTIONS (5)
  - Unintended pregnancy [Not Recovered/Not Resolved]
  - Mental disorder [Unknown]
  - Pregnancy with implant contraceptive [Not Recovered/Not Resolved]
  - Road traffic accident [Unknown]
  - Complication associated with device [Not Recovered/Not Resolved]

NARRATIVE: CASE EVENT DATE: 20180801
